FAERS Safety Report 11170320 (Version 4)
Quarter: 2016Q1

REPORT INFORMATION
  Report Type: Spontaneous
  Country: NL (occurrence: NL)
  Receive Date: 20150608
  Receipt Date: 20160224
  Transmission Date: 20160525
  Serious: Yes (Other)
  Sender: FDA-Public Use
  Company Number: NL-ACCORD-031259

PATIENT
  Age: 57 Year
  Sex: Male

DRUGS (2)
  1. FOLIC ACID. [Concomitant]
     Active Substance: FOLIC ACID
     Indication: PSORIASIS
     Dosage: ALSO GIVEN INTRAVENOUSLY.
  2. METHOTREXATE [Suspect]
     Active Substance: METHOTREXATE
     Indication: PSORIASIS
     Dosage: RECEIVED FOR MANY YEARS

REACTIONS (7)
  - Skin lesion [Recovered/Resolved]
  - Dehydration [Unknown]
  - Dysphagia [Unknown]
  - Mouth ulceration [Unknown]
  - Toxicity to various agents [Unknown]
  - Pancytopenia [Recovered/Resolved]
  - Off label use [Unknown]
